FAERS Safety Report 5169811-1 (Version None)
Quarter: 2006Q4

REPORT INFORMATION
  Report Type: 
  Country: None (occurrence: None)
  Receive Date: 20061212
  Receipt Date: 20060831
  Transmission Date: 20070319
  Serious: Yes (Death)
  Sender: FDA-Public Use
  Company Number: JP-BAYER-200611009BYL

PATIENT
  Age: 95 Year
  Sex: Female
  Weight: 36 kg

DRUGS (25)
  1. AVELOX [Suspect]
     Indication: BRONCHITIS ACUTE
     Dosage: TOTAL DAILY DOSE: 400 MG  UNIT DOSE: 400 MG
     Route: 048
     Dates: start: 20060818, end: 20060823
  2. LEVOFLOXACIN [Concomitant]
     Route: 048
  3. ROCEPHIN [Concomitant]
     Dosage: UNIT DOSE: 1 G
     Route: 042
     Dates: start: 20060812, end: 20060812
  4. ROCEPHIN [Concomitant]
     Dosage: UNIT DOSE: 1 G
     Route: 042
     Dates: start: 20060818, end: 20060819
  5. ROCEPHIN [Concomitant]
     Dosage: UNIT DOSE: 1 G
     Route: 042
     Dates: start: 20060909, end: 20060909
  6. ROCEPHIN [Concomitant]
     Dosage: UNIT DOSE: 1 G
     Route: 042
     Dates: start: 20060901, end: 20060901
  7. ROCEPHIN [Concomitant]
     Dosage: UNIT DOSE: 1 G
     Route: 042
     Dates: start: 20060830, end: 20060830
  8. ROCEPHIN [Concomitant]
     Dosage: UNIT DOSE: 1 G
     Route: 042
     Dates: start: 20061004, end: 20061006
  9. ROCEPHIN [Concomitant]
     Dosage: UNIT DOSE: 1 G
     Route: 042
     Dates: start: 20061003, end: 20061003
  10. ROCEPHIN [Concomitant]
     Dosage: UNIT DOSE: 1 G
     Route: 042
     Dates: start: 20060821, end: 20060826
  11. ROCEPHIN [Concomitant]
     Dosage: UNIT DOSE: 1 G
     Route: 042
     Dates: start: 20060911, end: 20060922
  12. TERNELIN [Concomitant]
     Route: 048
     Dates: start: 20021105, end: 20060926
  13. MEXIBAL [Concomitant]
     Route: 048
     Dates: start: 20021105, end: 20060926
  14. LENDORMIN [Concomitant]
     Route: 048
     Dates: start: 20021105, end: 20060926
  15. PLETAL [Concomitant]
     Route: 048
     Dates: start: 20030212, end: 20060926
  16. MUCOSTA [Concomitant]
     Route: 048
     Dates: start: 20060501, end: 20060926
  17. COCARL [Concomitant]
     Route: 048
     Dates: start: 20060818, end: 20060926
  18. PROTECADIN [Concomitant]
     Route: 048
     Dates: start: 20060501, end: 20060926
  19. SOLMALT [Concomitant]
     Route: 042
     Dates: start: 20060911, end: 20060922
  20. SOLMALT [Concomitant]
     Route: 042
     Dates: start: 20060901, end: 20060901
  21. SOLMALT [Concomitant]
     Route: 042
     Dates: start: 20060830, end: 20060830
  22. SOLMALT [Concomitant]
     Route: 042
     Dates: start: 20060909, end: 20060909
  23. SOLMALT [Concomitant]
     Route: 042
     Dates: start: 20061003, end: 20061006
  24. SOLMALT [Concomitant]
     Route: 042
     Dates: start: 20060812, end: 20060812
  25. SOLMALT [Concomitant]
     Route: 042
     Dates: start: 20060818, end: 20060826

REACTIONS (5)
  - BLOOD LACTATE DEHYDROGENASE INCREASED [None]
  - BLOOD URIC ACID INCREASED [None]
  - FUNGUS URINE TEST POSITIVE [None]
  - HAEMATURIA [None]
  - RENAL IMPAIRMENT [None]
